FAERS Safety Report 5663744-X (Version None)
Quarter: 2008Q1

REPORT INFORMATION
  Report Type: 
  Country: None (occurrence: None)
  Receive Date: 20080311
  Receipt Date: 20080304
  Transmission Date: 20080703
  Serious: Yes (Hospitalization)
  Sender: FDA-Public Use
  Company Number: 2008SP000501

PATIENT
  Sex: Female

DRUGS (4)
  1. XOPENEX [Suspect]
     Indication: ASTHMA
     Dosage: 1.25 MG/3ML; 1X; INHALATION
     Route: 055
     Dates: start: 20080227, end: 20080227
  2. XOPENEX [Suspect]
     Indication: BRONCHITIS
     Dosage: 1.25 MG/3ML; 1X; INHALATION
     Route: 055
     Dates: start: 20080227, end: 20080227
  3. SINGULAIR [Concomitant]
  4. ALBUTEROL [Concomitant]

REACTIONS (4)
  - ASTHMA [None]
  - CONDITION AGGRAVATED [None]
  - DRUG EXPOSURE DURING PREGNANCY [None]
  - PNEUMONIA [None]
